FAERS Safety Report 4445115-7 (Version None)
Quarter: 2004Q3

REPORT INFORMATION
  Report Type: 
  Country: None (occurrence: None)
  Receive Date: 20040907
  Receipt Date: 20040825
  Transmission Date: 20050211
  Serious: No
  Sender: FDA-Public Use
  Company Number: 04H-153-0271637-00

PATIENT
  Age: 47 Year
  Sex: Male

DRUGS (1)
  1. ISOPROTERENOL HCL INJECTION (ISOPROTERENOL HYDROCHLORIDE) (ISOPROTEREN [Suspect]
     Dosage: 1, 2, 3, MICROGRAMS/ MINUTE AT EACH STAGE, INTRAVENOUS
     Route: 042

REACTIONS (6)
  - ARTERIOSPASM CORONARY [None]
  - CHEST DISCOMFORT [None]
  - CHEST PAIN [None]
  - ELECTROCARDIOGRAM ST SEGMENT ELEVATION [None]
  - HYPOTENSION [None]
  - SYNCOPE [None]
